FAERS Safety Report 7805414-5 (Version None)
Quarter: 2011Q4

REPORT INFORMATION
  Report Type: 
  Country: None (occurrence: None)
  Receive Date: 20111010
  Receipt Date: 20111004
  Transmission Date: 20120403
  Serious: Yes (Hospitalization)
  Sender: FDA-Public Use
  Company Number: FR-ABBOTT-11P-056-0860587-00

PATIENT
  Sex: Male

DRUGS (4)
  1. CLARITHROMYCIN [Suspect]
     Indication: PHARYNGITIS
     Route: 048
     Dates: start: 20110707
  2. ACETAMINOPHEN [Concomitant]
     Indication: PHARYNGITIS
     Route: 048
     Dates: start: 20110707
  3. CHLORHEXIDINE GLUCONATE [Concomitant]
     Indication: PHARYNGITIS
     Route: 061
     Dates: start: 20110707
  4. NAPHAZOLINE HCL [Suspect]
     Indication: PHARYNGITIS
     Route: 045
     Dates: start: 20110707

REACTIONS (7)
  - PHARYNGITIS [None]
  - NECK PAIN [None]
  - PYREXIA [None]
  - HEADACHE [None]
  - NAUSEA [None]
  - VOMITING [None]
  - ODYNOPHAGIA [None]
